FAERS Safety Report 5025612-6 (Version None)
Quarter: 2006Q2

REPORT INFORMATION
  Report Type: 
  Country: None (occurrence: None)
  Receive Date: 20060426
  Receipt Date: 20060217
  Transmission Date: 20061013
  Serious: Yes (Other)
  Sender: FDA-Public Use
  Company Number: 2006025008

PATIENT
  Age: 54 Year
  Sex: Female

DRUGS (16)
  1. LYRICA [Suspect]
     Indication: DIABETIC NEUROPATHY
     Dosage: 300 MG (100 MG, 3 IN 1 D), ORAL
     Route: 048
     Dates: start: 20050901
  2. LANTUS [Concomitant]
  3. NOVOLOG [Concomitant]
  4. CYMBALTA [Concomitant]
  5. ALL OTHER THERAPEUTIC PRODUCTS (ALL OTHER THERAPEUTIC PRODUCTS) [Concomitant]
  6. EFFEXOR XR [Concomitant]
  7. SEROQUEL [Concomitant]
  8. XANAX [Concomitant]
  9. COPAXONE [Concomitant]
  10. IMITREX [Concomitant]
  11. NEURONTIN [Concomitant]
  12. KADIAN [Concomitant]
  13. CENESTIN [Concomitant]
  14. SYNTHROID [Concomitant]
  15. LUNESTA [Concomitant]
  16. PROMETRIUM [Concomitant]

REACTIONS (5)
  - BLOOD GLUCOSE DECREASED [None]
  - FEELING ABNORMAL [None]
  - FORMICATION [None]
  - HUNGER [None]
  - WEIGHT INCREASED [None]
